FAERS Safety Report 20657402 (Version 4)
Quarter: 2023Q4

REPORT INFORMATION
  Report Type: Report from Study
  Country: AU (occurrence: None)
  Receive Date: 20220331
  Receipt Date: 20231006
  Transmission Date: 20240110
  Serious: Yes (Hospitalization)
  Sender: FDA-Public Use
  Company Number: AU-ROCHE-3058286

PATIENT
  Age: 37 Year
  Sex: Female
  Weight: 70.8 kg

DRUGS (8)
  1. ATEZOLIZUMAB [Suspect]
     Active Substance: ATEZOLIZUMAB
     Indication: Triple negative breast cancer
     Dosage: DATE OF MOST RECENT DOSE 840 MG OF STUDY DRUG PRIOR TO AE: 21/MAR/2022
     Route: 041
     Dates: start: 20220307
  2. PACLITAXEL [Suspect]
     Active Substance: PACLITAXEL
     Indication: Triple negative breast cancer
     Dosage: DATE OF MOST RECENT DOSE (180 MG) OF STUDY DRUG PRIOR TO AE: 21/MAR/2022
     Route: 042
     Dates: start: 20220307
  3. METOCLOPRAMIDE [Concomitant]
     Active Substance: METOCLOPRAMIDE
     Route: 048
     Dates: start: 20220307, end: 20220823
  4. ACETAMINOPHEN [Concomitant]
     Active Substance: ACETAMINOPHEN
     Indication: External ear pain
     Route: 048
     Dates: start: 20220322, end: 20220409
  5. ACETAMINOPHEN [Concomitant]
     Active Substance: ACETAMINOPHEN
     Indication: Pyrexia
  6. ACETAMINOPHEN [Concomitant]
     Active Substance: ACETAMINOPHEN
     Indication: Musculoskeletal chest pain
  7. ONDANSETRON [Concomitant]
     Active Substance: ONDANSETRON
     Indication: Enterocolitis infectious
     Route: 048
     Dates: start: 20220304
  8. ONDANSETRON [Concomitant]
     Active Substance: ONDANSETRON
     Indication: Nausea

REACTIONS (1)
  - Pyrexia [Recovered/Resolved]

NARRATIVE: CASE EVENT DATE: 20220322
